FAERS Safety Report 15844133 (Version 1)
Quarter: 2019Q1

REPORT INFORMATION
  Report Type: Spontaneous
  Country: US (occurrence: US)
  Receive Date: 20190118
  Receipt Date: 20190118
  Transmission Date: 20190417
  Serious: Yes (Other)
  Sender: FDA-Public Use
  Company Number: US-TARO-2019TAR00019

PATIENT
  Sex: Female
  Weight: 52.61 kg

DRUGS (4)
  1. UNSPECIFIED MACULAR DEGENERATION MEDICATION [Suspect]
     Active Substance: UNSPECIFIED INGREDIENT
     Indication: MACULAR DEGENERATION
     Dosage: UNK
     Dates: start: 2018
  2. UNSPECIFIED VITAMINS [Concomitant]
     Active Substance: VITAMINS
  3. CLOTRIMAZOLE/BETAMETHASONE DIPROPIONATE CREAM USP 1%/0.05% [Suspect]
     Active Substance: BETAMETHASONE DIPROPIONATE\CLOTRIMAZOLE
     Indication: SCAB
     Dosage: VERY LITTLE AMOUNT, 1X/DAY ON HER HANDS/FINGERS
     Route: 061
     Dates: start: 2017
  4. CLOTRIMAZOLE/BETAMETHASONE DIPROPIONATE CREAM USP 1%/0.05% [Suspect]
     Active Substance: BETAMETHASONE DIPROPIONATE\CLOTRIMAZOLE
     Indication: FUNGAL INFECTION
     Dosage: VERY LITTLE AMOUNT, 1X/DAY, OFF AND ON, TO FEET, ANKLES, AND LEGS
     Route: 061
     Dates: start: 201804

REACTIONS (9)
  - Burning sensation [Unknown]
  - Cataract [Unknown]
  - Pain [Not Recovered/Not Resolved]
  - Eczema [Unknown]
  - Application site pain [Unknown]
  - Gait disturbance [Not Recovered/Not Resolved]
  - Eye haemorrhage [Unknown]
  - Insomnia [Unknown]
  - Skin exfoliation [Not Recovered/Not Resolved]

NARRATIVE: CASE EVENT DATE: 2018
